FAERS Safety Report 23824279 (Version 7)
Quarter: 2024Q4

REPORT INFORMATION
  Report Type: Report from Study
  Country: US (occurrence: US)
  Receive Date: 20240507
  Receipt Date: 20241009
  Transmission Date: 20250115
  Serious: Yes (Hospitalization, Other)
  Sender: ROCHE
  Company Number: US-ROCHE-3555409

PATIENT
  Age: 7 Year
  Sex: Male
  Weight: 25.3 kg

DRUGS (17)
  1. EVRYSDI [Suspect]
     Active Substance: RISDIPLAM
     Indication: Spinal muscular atrophy
     Dosage: 6. 6 ML, GASTRIC USE
     Route: 050
     Dates: start: 20230426
  2. BUDESONIDE [Concomitant]
     Active Substance: BUDESONIDE
  3. CETIRIZINE HYDROCHLORIDE [Concomitant]
     Active Substance: CETIRIZINE HYDROCHLORIDE
  4. DIAZEPAM [Concomitant]
     Active Substance: DIAZEPAM
  5. ESOMEPRAZOLE [Concomitant]
     Active Substance: ESOMEPRAZOLE
  6. IPRATROPIUM [Concomitant]
     Active Substance: IPRATROPIUM
  7. HYDROCORTISONE [Concomitant]
     Active Substance: HYDROCORTISONE
  8. LEVALBUTEROL HYDROCHLORIDE [Concomitant]
     Active Substance: LEVALBUTEROL HYDROCHLORIDE
  9. LEVETIRACETAM [Concomitant]
     Active Substance: LEVETIRACETAM
  10. MUPIROCIN [Concomitant]
     Active Substance: MUPIROCIN
  11. NYSTATIN [Concomitant]
     Active Substance: NYSTATIN
  12. OXCARBAZEPINE [Concomitant]
     Active Substance: OXCARBAZEPINE
  13. ZONISAMIDE [Concomitant]
     Active Substance: ZONISAMIDE
  14. TYLENOL [Concomitant]
     Active Substance: ACETAMINOPHEN
  15. PULMICORT TURBUHALER [Concomitant]
     Active Substance: BUDESONIDE
  16. CILOXAN [Concomitant]
     Active Substance: CIPROFLOXACIN HYDROCHLORIDE
  17. ZYRTEC [Concomitant]
     Active Substance: CETIRIZINE HYDROCHLORIDE

REACTIONS (21)
  - Status epilepticus [Recovering/Resolving]
  - Seizure [Not Recovered/Not Resolved]
  - Cardiac arrest [Unknown]
  - Atelectasis [Unknown]
  - Oxygen saturation decreased [Unknown]
  - Hypercapnia [Unknown]
  - Epilepsy [Unknown]
  - Salivary hypersecretion [Unknown]
  - Scoliosis [Unknown]
  - Diarrhoea [Unknown]
  - Hypophosphataemia [Unknown]
  - Hypokalaemia [Unknown]
  - Cerebral ischaemia [Unknown]
  - Eye injury [Unknown]
  - Bacterial tracheitis [Unknown]
  - Hypoxic-ischaemic encephalopathy [Unknown]
  - Oral discharge [Unknown]
  - Deformity thorax [Unknown]
  - Breath sounds abnormal [Unknown]
  - Coma [Unknown]
  - Chronic respiratory failure [Unknown]

NARRATIVE: CASE EVENT DATE: 20240424
